FAERS Safety Report 6780260-2 (Version None)
Quarter: 2010Q2

REPORT INFORMATION
  Report Type: 
  Country: None (occurrence: None)
  Receive Date: 20100618
  Receipt Date: 20100607
  Transmission Date: 20101027
  Serious: Yes (Life-Threatening, Hospitalization)
  Sender: FDA-Public Use
  Company Number: DE-WYE-H08625509

PATIENT
  Age: 79 Year
  Sex: Male
  Weight: 97 kg

DRUGS (11)
  1. PANTOZOL [Suspect]
     Indication: REFLUX OESOPHAGITIS
     Route: 048
     Dates: start: 20090110, end: 20090212
  2. PANTOZOL [Suspect]
     Route: 048
     Dates: start: 20090213
  3. METOPROLOL SUCCINATE [Concomitant]
     Indication: HYPERTENSION
     Dates: start: 20000101
  4. ENALAPRIL MALEATE [Concomitant]
     Indication: HYPERTENSION
     Route: 048
     Dates: start: 20000101
  5. IBUPROFEN [Concomitant]
     Indication: PAIN
     Dosage: 800 MG AS NEEDED
     Dates: start: 19980101, end: 20090212
  6. ISCOVER [Concomitant]
     Indication: ATRIAL FIBRILLATION
     Route: 048
     Dates: start: 20000101
  7. ISOMONIT [Concomitant]
     Indication: ANGINA PECTORIS
     Route: 048
     Dates: start: 20000101, end: 20090212
  8. ALLOPURINOL [Concomitant]
     Indication: HYPERURICAEMIA
     Dates: start: 20000101, end: 20090201
  9. ALLOPURINOL [Concomitant]
     Dates: start: 20090201
  10. VASERETIC [Concomitant]
     Indication: HYPERTENSION
     Route: 048
     Dates: start: 20000101, end: 20090212
  11. VASERETIC [Concomitant]
     Route: 048
     Dates: start: 20090201

REACTIONS (9)
  - C-REACTIVE PROTEIN INCREASED [None]
  - DEHYDRATION [None]
  - DIARRHOEA [None]
  - GASTROENTERITIS ROTAVIRUS [None]
  - HYPOKALAEMIA [None]
  - HYPONATRAEMIA [None]
  - PNEUMONIA [None]
  - RENAL FAILURE [None]
  - SYNCOPE [None]
